FAERS Safety Report 7791628-X (Version None)
Quarter: 2011Q4

REPORT INFORMATION
  Report Type: 
  Country: None (occurrence: None)
  Receive Date: 20111003
  Receipt Date: 20110926
  Transmission Date: 20120403
  Serious: Yes (Other)
  Sender: FDA-Public Use
  Company Number: JP-ABBOTT-11P-087-0846030-00

PATIENT
  Sex: Male

DRUGS (2)
  1. LEUPROLIDE ACETATE [Suspect]
     Indication: PRODUCT USED FOR UNKNOWN INDICATION
     Route: 058
     Dates: start: 20090819, end: 20100110
  2. BICALUTAMIDE ASKA [Suspect]
     Indication: PROSTATE CANCER
     Route: 048
     Dates: start: 20090729, end: 20100223

REACTIONS (1)
  - ANAEMIA [None]
